FAERS Safety Report 5697458-7 (Version None)
Quarter: 2008Q2

REPORT INFORMATION
  Report Type: 
  Country: None (occurrence: None)
  Receive Date: 20080407
  Receipt Date: 20080329
  Transmission Date: 20081010
  Serious: Yes (Other)
  Sender: FDA-Public Use
  Company Number: PHHY2008MX04192

PATIENT
  Age: 67 Year
  Sex: Female

DRUGS (1)
  1. DIOVAN HCT [Suspect]
     Indication: HYPERTENSION
     Dosage: 160/ 12.5 MG DAILY
     Route: 048
     Dates: start: 20070901

REACTIONS (1)
  - PNEUMONIA [None]
